FAERS Safety Report 5110833-4 (Version None)
Quarter: 2006Q3

REPORT INFORMATION
  Report Type: 
  Country: None (occurrence: None)
  Receive Date: 20060919
  Receipt Date: 20060914
  Transmission Date: 20061208
  Serious: Yes (Death)
  Sender: FDA-Public Use
  Company Number: GXKR2006GB05693

PATIENT
  Age: 91 Year
  Sex: Male

DRUGS (1)
  1. TEMAZEPAM [Suspect]
     Dosage: 10 MG, QD
     Dates: start: 20060101

REACTIONS (1)
  - DEATH [None]
